FAERS Safety Report 6303785-2 (Version None)
Quarter: 2009Q3

REPORT INFORMATION
  Report Type: 
  Country: None (occurrence: None)
  Receive Date: 20090805
  Receipt Date: 20090724
  Transmission Date: 20100115
  Serious: Yes (Death, Other)
  Sender: FDA-Public Use
  Company Number: 2009AP003048

PATIENT

DRUGS (1)
  1. ALENDRONATE SODIUM [Suspect]
     Dosage: 70 MG;TAB;PO;QD ; 70 MG;TAB;PO;QW
     Route: 048

REACTIONS (2)
  - GASTROINTESTINAL HAEMORRHAGE [None]
  - OVERDOSE [None]
